FAERS Safety Report 24312656 (Version 1)
Quarter: 2024Q3

REPORT INFORMATION
  Report Type: Spontaneous
  Country: GB (occurrence: GB)
  Receive Date: 20240912
  Receipt Date: 20240912
  Transmission Date: 20241017
  Serious: Yes (Other)
  Sender: PERRIGO
  Company Number: None

PATIENT
  Age: 9 Year
  Sex: Male
  Weight: 29 kg

DRUGS (3)
  1. PERMETHRIN [Suspect]
     Active Substance: PERMETHRIN
     Indication: Ill-defined disorder
     Dosage: APPLY TO THE WHOLE BODY, FROM THE CHIN AND EARS...
     Route: 065
     Dates: start: 20240724, end: 20240731
  2. MOVICOL [Concomitant]
     Active Substance: POLYETHYLENE GLYCOL 3350\POTASSIUM CHLORIDE\SODIUM BICARBONATE\SODIUM CHLORIDE
     Indication: Ill-defined disorder
     Dosage: 1-2 UP TO 4 SACHETS TO BE TAKEN EACH DAY
     Dates: start: 20220928
  3. ALGINATE [Concomitant]
     Indication: Ill-defined disorder
     Dates: start: 20221107

REACTIONS (2)
  - Pharyngeal swelling [Recovered/Resolved]
  - Lip swelling [Recovered/Resolved]
